FAERS Safety Report 9684572 (Version 1)
Quarter: 2013Q4

REPORT INFORMATION
  Report Type: Spontaneous
  Country: US (occurrence: US)
  Receive Date: 20131112
  Receipt Date: 20131112
  Transmission Date: 20140711
  Serious: No
  Sender: FDA-Public Use
  Company Number: US-AMGEN-USASP2013051541

PATIENT
  Age: 90 Year
  Sex: Female

DRUGS (12)
  1. ARANESP [Suspect]
     Indication: ANAEMIA
     Dosage: 300 MUG, EVERY 2 TO 3 WEEK
     Dates: start: 20130422
  2. ARANESP [Suspect]
     Indication: MYELODYSPLASTIC SYNDROME
  3. BENICAR [Concomitant]
     Dosage: 10 TO 20MG DAILY
  4. AMLODIPINE [Concomitant]
     Dosage: UNK UNK, QD 5 TO 10MG DAILY
  5. ZANTAC [Concomitant]
     Dosage: 160 MG, QID
  6. BENTYL [Concomitant]
     Dosage: 20 MG, QD
  7. SUCRALFATE [Concomitant]
     Dosage: 1 MG, QD
  8. DEXILANT [Concomitant]
     Dosage: 60 MG, QD
  9. SYMBICORT [Concomitant]
     Dosage: 80/4.5 MCG
  10. CALCIUM [Concomitant]
  11. VITAMIN D                          /00107901/ [Concomitant]
  12. MULTIVITAMIN                       /00097801/ [Concomitant]

REACTIONS (1)
  - Abdominal pain [Unknown]
